FAERS Safety Report 4586564-6 (Version None)
Quarter: 2005Q1

REPORT INFORMATION
  Report Type: 
  Country: None (occurrence: None)
  Receive Date: 20050218
  Receipt Date: 20040329
  Transmission Date: 20050727
  Serious: Yes (Hospitalization)
  Sender: FDA-Public Use
  Company Number: US-BRISTOL-MYERS SQUIBB COMPANY-12544375

PATIENT
  Age: 53 Year
  Sex: Female
  Weight: 75 kg

DRUGS (14)
  1. TAXOL [Suspect]
     Indication: OVARIAN CANCER
     Route: 042
     Dates: start: 20030908, end: 20030908
  2. DECADRON [Concomitant]
     Indication: PREMEDICATION
     Dosage: 20 MG AT MIDNIGHT AND 6AM
     Route: 048
     Dates: start: 20030908, end: 20030908
  3. DECADRON [Concomitant]
     Route: 042
     Dates: start: 20030908, end: 20030908
  4. TAGAMET [Concomitant]
     Indication: PREMEDICATION
     Route: 042
     Dates: start: 20030908, end: 20030908
  5. BENADRYL [Concomitant]
     Indication: PREMEDICATION
     Route: 042
     Dates: start: 20030908, end: 20030908
  6. PREMARIN [Concomitant]
  7. CARAFATE [Concomitant]
  8. CELEBREX [Concomitant]
  9. PROZAC [Concomitant]
  10. LORAZEPAM [Concomitant]
  11. TAVIST [Concomitant]
  12. SONATA [Concomitant]
  13. MS CONTIN [Concomitant]
  14. PREVACID [Concomitant]

REACTIONS (1)
  - HYPERSENSITIVITY [None]
